FAERS Safety Report 25928453 (Version 1)
Quarter: 2025Q4

REPORT INFORMATION
  Report Type: Spontaneous
  Country: US (occurrence: US)
  Receive Date: 20251016
  Receipt Date: 20251016
  Transmission Date: 20260117
  Serious: Yes (Life-Threatening, Hospitalization)
  Sender: DR REDDYS
  Company Number: None

PATIENT
  Age: 40 Year
  Sex: Male

DRUGS (3)
  1. HEPARIN [Suspect]
     Active Substance: HEPARIN SODIUM
     Indication: Product used for unknown indication
     Dosage: TOTAL HEPARIN 62,100 UNITS
     Route: 042
  2. HEPARIN [Suspect]
     Active Substance: HEPARIN SODIUM
     Dosage: TOTAL HEPARIN 62,100 UNITS
     Route: 058
  3. CANGRELOR [Concomitant]
     Active Substance: CANGRELOR
     Indication: Product used for unknown indication

REACTIONS (5)
  - Heparin-induced thrombocytopenia [Recovered/Resolved]
  - Haemorrhage [Recovering/Resolving]
  - Vena cava thrombosis [Recovering/Resolving]
  - Thrombophlebitis [Recovering/Resolving]
  - Pelvic venous thrombosis [Recovering/Resolving]
